FAERS Safety Report 5498239-X (Version None)
Quarter: 2007Q4

REPORT INFORMATION
  Report Type: 
  Country: None (occurrence: None)
  Receive Date: 20071025
  Receipt Date: 20070423
  Transmission Date: 20080405
  Serious: No
  Sender: FDA-Public Use
  Company Number: A0647624A

PATIENT
  Age: 84 Year
  Sex: Male

DRUGS (7)
  1. ADVAIR DISKUS 100/50 [Suspect]
     Indication: ASTHMA
     Dosage: 1PUFF TWICE PER DAY
     Route: 055
  2. PACERONE [Concomitant]
  3. ZESTRIL [Concomitant]
  4. LASIX [Concomitant]
  5. ZYLOPRIM [Concomitant]
  6. ASPIRIN [Concomitant]
  7. VITAL EYES [Concomitant]

REACTIONS (4)
  - GLOSSODYNIA [None]
  - PAIN IN JAW [None]
  - SWELLING FACE [None]
  - SWOLLEN TONGUE [None]
